FAERS Safety Report 12647351 (Version 3)
Quarter: 2016Q3

REPORT INFORMATION
  Report Type: Report from Study
  Country: US (occurrence: US)
  Receive Date: 20160812
  Receipt Date: 20160921
  Transmission Date: 20161109
  Serious: Yes (Other)
  Sender: FDA-Public Use
  Company Number: US-SUN PHARMACEUTICAL INDUSTRIES LTD-2016US-121996

PATIENT
  Age: 29 Year
  Sex: Female

DRUGS (1)
  1. ABSORICA [Suspect]
     Active Substance: ISOTRETINOIN
     Indication: PRODUCT USED FOR UNKNOWN INDICATION
     Dosage: 40 MG, QD
     Route: 065
     Dates: start: 201606, end: 20160722

REACTIONS (5)
  - Exposure during pregnancy [Recovered/Resolved]
  - Lymphocyte count increased [Unknown]
  - High density lipoprotein decreased [Unknown]
  - Blood urea nitrogen/creatinine ratio increased [Unknown]
  - Abortion induced [Recovered/Resolved]

NARRATIVE: CASE EVENT DATE: 2016
